FAERS Safety Report 21692246 (Version 3)
Quarter: 2024Q2

REPORT INFORMATION
  Report Type: Spontaneous
  Country: JP (occurrence: JP)
  Receive Date: 20221207
  Receipt Date: 20240603
  Transmission Date: 20240716
  Serious: Yes (Life-Threatening, Hospitalization, Other)
  Sender: FDA-Public Use
  Company Number: JP-PFIZER INC-PV202200117943

PATIENT
  Age: 48 Year
  Sex: Female
  Weight: 40 kg

DRUGS (7)
  1. FOSPHENYTOIN SODIUM [Suspect]
     Active Substance: FOSPHENYTOIN SODIUM
     Indication: Status epilepticus
     Dosage: 900 MG
     Route: 042
  2. FOSPHENYTOIN SODIUM [Suspect]
     Active Substance: FOSPHENYTOIN SODIUM
     Dosage: 390 MG/DAY (MAINTENANCE DOSE)
     Route: 042
  3. FOSPHENYTOIN SODIUM [Suspect]
     Active Substance: FOSPHENYTOIN SODIUM
     Dosage: 380 MG, DAILY
     Route: 042
     Dates: start: 20221114, end: 20221129
  4. PHENOBARBITAL SODIUM [Suspect]
     Active Substance: PHENOBARBITAL SODIUM
     Indication: Status epilepticus
     Dosage: 625 MG
     Route: 042
  5. PHENOBARBITAL SODIUM [Suspect]
     Active Substance: PHENOBARBITAL SODIUM
     Dosage: 750 MG, DAILY (MAINTAINED AT)
     Route: 042
     Dates: start: 20221114, end: 20221129
  6. PHENOBAL [PHENOBARBITAL SODIUM] [Concomitant]
     Dosage: AT A DOSE OF 120
     Route: 048
  7. LEVETIRACETAM [Concomitant]
     Active Substance: LEVETIRACETAM
     Indication: Epilepsy
     Dosage: UNK
     Route: 042

REACTIONS (7)
  - Respiratory depression [Recovered/Resolved]
  - Renal impairment [Unknown]
  - Therapeutic product effect incomplete [Unknown]
  - Anticonvulsant drug level above therapeutic [Unknown]
  - Anticonvulsant drug level increased [Unknown]
  - Blood pressure decreased [Recovered/Resolved]
  - Altered state of consciousness [Recovered/Resolved]

NARRATIVE: CASE EVENT DATE: 20221124
